FAERS Safety Report 21619617 (Version 2)
Quarter: 2023Q2

REPORT INFORMATION
  Report Type: Spontaneous
  Country: RO (occurrence: RO)
  Receive Date: 20221121
  Receipt Date: 20230430
  Transmission Date: 20230721
  Serious: Yes (Hospitalization)
  Sender: FDA-Public Use
  Company Number: RO-drreddys-SPO/ROM/22/0154978

PATIENT
  Age: 69 Year
  Sex: Male
  Weight: 49 kg

DRUGS (3)
  1. PEMETREXED [Suspect]
     Active Substance: PEMETREXED
     Indication: Non-small cell lung cancer
     Dosage: 500 MG/M2
     Route: 065
     Dates: start: 20220608
  2. PEMETREXED [Suspect]
     Active Substance: PEMETREXED
     Dosage: 375 MG/M2
     Route: 065
     Dates: start: 20220922
  3. CARBOPLATIN [Suspect]
     Active Substance: CARBOPLATIN
     Indication: Non-small cell lung cancer
     Dosage: UNK (AUC 5)
     Route: 065
     Dates: start: 20220608

REACTIONS (1)
  - Febrile neutropenia [Recovered/Resolved]

NARRATIVE: CASE EVENT DATE: 20220830
